FAERS Safety Report 9529031 (Version 1)
Quarter: 2013Q1

REPORT INFORMATION
  Report Type: Spontaneous
  Country: US (occurrence: None)
  Receive Date: 20130318
  Receipt Date: 20130318
  Transmission Date: 20140127
  Serious: Yes (Other)
  Sender: FDA-Public Use
  Company Number: 163-21660-12062316

PATIENT
  Age: 69 Year
  Sex: Female
  Weight: 63.5 kg

DRUGS (6)
  1. ABRAXANE [Suspect]
     Dosage: 192.3 MG, DAYS 1,8,15 Q 28 DAYS, IV
     Dates: start: 20111208
  2. HYDROMORPHONE (HYDROROMORPHONE) [Concomitant]
  3. MORPHINE [Concomitant]
  4. XANAX [Concomitant]
  5. GEMCITABINE [Concomitant]
  6. LEVOFLOXACIN [Concomitant]

REACTIONS (2)
  - Platelet count decreased [None]
  - Neutropenia [None]
